FAERS Safety Report 25683259 (Version 1)
Quarter: 2025Q3

REPORT INFORMATION
  Report Type: Spontaneous
  Country: EU (occurrence: EU)
  Receive Date: 20250814
  Receipt Date: 20250814
  Transmission Date: 20251021
  Serious: Yes (Death, Other)
  Sender: PFIZER
  Company Number: EU-JNJFOC-20250119143

PATIENT
  Sex: Female
  Weight: 48 kg

DRUGS (7)
  1. PEMETREXED [Suspect]
     Active Substance: PEMETREXED
     Indication: Non-small cell lung cancer
     Dates: start: 20241017
  2. PEMETREXED [Suspect]
     Active Substance: PEMETREXED
     Dates: start: 20241121, end: 20241202
  3. CARBOPLATIN [Suspect]
     Active Substance: CARBOPLATIN
     Indication: Non-small cell lung cancer
     Dates: start: 20241017
  4. CARBOPLATIN [Suspect]
     Active Substance: CARBOPLATIN
     Dates: start: 20241121, end: 20241202
  5. AMIVANTAMAB [Suspect]
     Active Substance: AMIVANTAMAB
     Indication: Non-small cell lung cancer
     Dates: end: 20241017
  6. AMIVANTAMAB [Suspect]
     Active Substance: AMIVANTAMAB
     Dates: start: 20241121, end: 20241202
  7. OSIMERTINIB [Concomitant]
     Active Substance: OSIMERTINIB

REACTIONS (3)
  - Death [Fatal]
  - Non-small cell lung cancer [Unknown]
  - Malignant neoplasm progression [Unknown]

NARRATIVE: CASE EVENT DATE: 20241202
